FAERS Safety Report 8385255 (Version 4)
Quarter: 2012Q4

REPORT INFORMATION
  Report Type: 
  Country: US (occurrence: US)
  Receive Date: 20120202
  Receipt Date: 20121122
  Transmission Date: 20130627
  Serious: Yes (Death, Other)
  Sender: FDA-Public Use
  Company Number: US-ROCHE-1035717

PATIENT
  Age: 45 Year
  Sex: Male

DRUGS (1)
  1. AVASTIN [Suspect]
     Indication: MIXED OLIGO-ASTROCYTOMA
     Route: 065
     Dates: start: 20070321, end: 20070613

REACTIONS (4)
  - Brain neoplasm [Fatal]
  - Brain neoplasm [Unknown]
  - Neck pain [Unknown]
  - Hypoaesthesia [Unknown]
